FAERS Safety Report 21252587 (Version 1)
Quarter: 2022Q3

REPORT INFORMATION
  Report Type: Spontaneous
  Country: US (occurrence: US)
  Receive Date: 20220825
  Receipt Date: 20220825
  Transmission Date: 20221026
  Serious: No
  Sender: FDA-Public Use
  Company Number: US-BIOGEN-2022BI01150203

PATIENT
  Sex: Female

DRUGS (1)
  1. VUMERITY [Suspect]
     Active Substance: DIROXIMEL FUMARATE
     Indication: Multiple sclerosis
     Route: 050

REACTIONS (4)
  - Pruritus genital [Not Recovered/Not Resolved]
  - Dysuria [Not Recovered/Not Resolved]
  - Perineal erythema [Unknown]
  - Rash [Recovered/Resolved]
